FAERS Safety Report 7620026-4 (Version None)
Quarter: 2011Q3

REPORT INFORMATION
  Report Type: 
  Country: None (occurrence: None)
  Receive Date: 20110719
  Receipt Date: 20110714
  Transmission Date: 20111222
  Serious: No
  Sender: FDA-Public Use
  Company Number: US-PFIZER INC-2011160550

PATIENT
  Sex: Male
  Weight: 82 kg

DRUGS (2)
  1. SYNTHROID [Concomitant]
     Indication: THYROID DISORDER
     Dosage: 50 UG, DAILY
  2. NARDIL [Suspect]
     Indication: BIPOLAR DISORDER
     Dosage: 15 MG, 3X/DAY
     Dates: start: 19850101

REACTIONS (1)
  - MALAISE [None]
